FAERS Safety Report 25374832 (Version 3)
Quarter: 2025Q3

REPORT INFORMATION
  Report Type: Spontaneous
  Country: ZA (occurrence: ZA)
  Receive Date: 20250529
  Receipt Date: 20250820
  Transmission Date: 20251021
  Serious: Yes (Other)
  Sender: MYLAN
  Company Number: ZA-MYLANLABS-2025M1043866

PATIENT
  Age: 9 Year
  Sex: Male

DRUGS (4)
  1. EPIPEN JR [Suspect]
     Active Substance: EPINEPHRINE
     Indication: Allergy to arthropod bite
  2. EPIPEN JR [Suspect]
     Active Substance: EPINEPHRINE
     Route: 065
  3. EPIPEN JR [Suspect]
     Active Substance: EPINEPHRINE
     Route: 065
  4. EPIPEN JR [Suspect]
     Active Substance: EPINEPHRINE

REACTIONS (2)
  - Device failure [Unknown]
  - Drug dose omission by device [Unknown]

NARRATIVE: CASE EVENT DATE: 20250516
